FAERS Safety Report 7760703-8 (Version None)
Quarter: 2011Q3

REPORT INFORMATION
  Report Type: 
  Country: None (occurrence: None)
  Receive Date: 20110919
  Receipt Date: 20110908
  Transmission Date: 20111222
  Serious: Yes (Other)
  Sender: FDA-Public Use
  Company Number: US-ASTRAZENECA-2011SE54314

PATIENT
  Age: 57 Year
  Sex: Female

DRUGS (3)
  1. PRILOSEC OTC [Suspect]
     Dosage: IN THE MORNING AND AT NIGHT
     Route: 048
  2. NSAIDS [Concomitant]
  3. NEXIUM [Suspect]
     Route: 048

REACTIONS (3)
  - JOINT INJURY [None]
  - HAEMATEMESIS [None]
  - DRUG INEFFECTIVE [None]
